FAERS Safety Report 7887075-2 (Version None)
Quarter: 2011Q4

REPORT INFORMATION
  Report Type: 
  Country: None (occurrence: None)
  Receive Date: 20111102
  Receipt Date: 20110714
  Transmission Date: 20120403
  Serious: No
  Sender: FDA-Public Use
  Company Number: US-AMGEN-USASP2011035840

PATIENT
  Age: 53 Year
  Sex: Female

DRUGS (4)
  1. PREDNISONE [Concomitant]
     Dosage: 20 MG, UNK
  2. VICODIN [Concomitant]
     Dosage: 500 MG, UNK
  3. ENBREL [Suspect]
     Indication: PRODUCT USED FOR UNKNOWN INDICATION
     Dosage: 50 MG, QWK
  4. TRAZODONE HYDROCHLORIDE [Concomitant]
     Dosage: 50 MG, UNK

REACTIONS (1)
  - PRURITUS [None]
